FAERS Safety Report 5570633-8 (Version None)
Quarter: 2007Q4

REPORT INFORMATION
  Report Type: 
  Country: None (occurrence: None)
  Receive Date: 20071221
  Receipt Date: 20071206
  Transmission Date: 20080405
  Serious: Yes (Other)
  Sender: FDA-Public Use
  Company Number: AU-TEVA-165140ISR

PATIENT

DRUGS (1)
  1. COPAXONE [Suspect]

REACTIONS (1)
  - SKIN NECROSIS [None]
